FAERS Safety Report 9526018 (Version 1)
Quarter: 2013Q3

REPORT INFORMATION
  Report Type: Spontaneous
  Country: IE (occurrence: IE)
  Receive Date: 20130916
  Receipt Date: 20130916
  Transmission Date: 20140515
  Serious: Yes (Death, Other)
  Sender: FDA-Public Use
  Company Number: IE-ROXANE LABORATORIES, INC.-2013-RO-01512RO

PATIENT
  Age: 72 Year
  Sex: Male

DRUGS (2)
  1. METHOTREXATE [Suspect]
     Indication: RHEUMATOID ARTHRITIS
     Route: 048
  2. DEXAMETHASONE [Suspect]
     Indication: SPINAL CORD COMPRESSION
     Dosage: 16 MG
     Route: 042

REACTIONS (4)
  - Necrotising fasciitis staphylococcal [Fatal]
  - Hypoxia [Unknown]
  - Atrial fibrillation [Unknown]
  - Depressed level of consciousness [Unknown]
